FAERS Safety Report 17260886 (Version 4)
Quarter: 2021Q1

REPORT INFORMATION
  Report Type: Report from Study
  Country: US (occurrence: US)
  Receive Date: 20200113
  Receipt Date: 20210129
  Transmission Date: 20210419
  Serious: Yes (Death, Life-Threatening, Hospitalization)
  Sender: FDA-Public Use
  Company Number: US-ROCHE-2340121

PATIENT
  Age: 74 Year
  Sex: Female
  Weight: 49.1 kg

DRUGS (7)
  1. LIPOSOMAL DOXORUBICIN [Suspect]
     Active Substance: DOXORUBICIN HYDROCHLORIDE
     Indication: OVARIAN CANCER
     Dosage: MOST RECENT DOSE ON 51.6 MG DOSE REDUCED TO 14.2% WEIGHT LOSS?MOST RECENT DOSE ON 56 MG
     Route: 065
     Dates: start: 20190412
  2. ATEZOLIZUMAB. [Suspect]
     Active Substance: ATEZOLIZUMAB
     Indication: OVARIAN CANCER
     Dosage: MOST RECENT DOSE (800 MG) ON 06/JUN/2019,CYCLE 2 OF DAY 1
     Route: 041
     Dates: start: 20190412
  3. BEVACIZUMAB. [Suspect]
     Active Substance: BEVACIZUMAB
     Indication: OVARIAN CANCER
     Dosage: MOST RECENT DOSE 493 MG ON 12/APR/2019
     Route: 065
     Dates: start: 20190412
  4. LEVOTHYROXINE. [Concomitant]
     Active Substance: LEVOTHYROXINE
  5. MAGNESIUM [Concomitant]
     Active Substance: MAGNESIUM
  6. LOPERAMIDE [Concomitant]
     Active Substance: LOPERAMIDE
  7. SENOKOT [Concomitant]
     Active Substance: SENNOSIDES

REACTIONS (8)
  - Intestinal perforation [Recovering/Resolving]
  - Pneumonia [Recovering/Resolving]
  - Large intestine perforation [Unknown]
  - Death [Fatal]
  - Nausea [Not Recovered/Not Resolved]
  - Pyrexia [Recovering/Resolving]
  - Pneumonia [Unknown]
  - Sepsis [Recovering/Resolving]

NARRATIVE: CASE EVENT DATE: 20190421
